FAERS Safety Report 6780355-3 (Version None)
Quarter: 2010Q2

REPORT INFORMATION
  Report Type: 
  Country: None (occurrence: None)
  Receive Date: 20100618
  Receipt Date: 20100611
  Transmission Date: 20101027
  Serious: Yes (Other)
  Sender: FDA-Public Use
  Company Number: US-AMGEN-QUU417913

PATIENT
  Sex: Female

DRUGS (1)
  1. ENBREL [Suspect]
     Indication: PSORIASIS
     Route: 058
     Dates: start: 20060123

REACTIONS (5)
  - CENTRAL NERVOUS SYSTEM LESION [None]
  - DEPRESSION [None]
  - DIARRHOEA [None]
  - FALL [None]
  - MEMORY IMPAIRMENT [None]
